FAERS Safety Report 9690812 (Version 4)
Quarter: 2014Q1

REPORT INFORMATION
  Report Type: Spontaneous
  Country: IE (occurrence: IE)
  Receive Date: 20131115
  Receipt Date: 20140210
  Transmission Date: 20141002
  Serious: Yes (Hospitalization, Other)
  Sender: FDA-Public Use
  Company Number: IE-BAYER-2013-137261

PATIENT
  Age: 35 Year
  Sex: Female

DRUGS (3)
  1. STIVARGA [Suspect]
     Indication: COLORECTAL CANCER METASTATIC
     Dosage: 160 MG, QD
     Route: 048
     Dates: start: 20131025, end: 20131104
  2. TAZOCIN [Concomitant]
     Dosage: UNK
     Dates: start: 20131104, end: 20131106
  3. GENTAMYCIN [Concomitant]
     Indication: RASH
     Dosage: 1 DOSE
     Route: 042
     Dates: start: 20131105, end: 20131105

REACTIONS (7)
  - Toxic skin eruption [Recovered/Resolved with Sequelae]
  - Acute respiratory distress syndrome [None]
  - Dyspnoea [None]
  - Influenza like illness [None]
  - Pyrexia [None]
  - Malaise [None]
  - Pneumocystis jirovecii infection [None]
